FAERS Safety Report 14604734 (Version 1)
Quarter: 2018Q1

REPORT INFORMATION
  Report Type: Spontaneous
  Country: DK (occurrence: DK)
  Receive Date: 20180306
  Receipt Date: 20180306
  Transmission Date: 20180509
  Serious: Yes (Hospitalization, Other)
  Sender: FDA-Public Use
  Company Number: DK-ABBVIE-18K-044-2274510-00

PATIENT
  Age: 38 Year
  Sex: Female

DRUGS (2)
  1. HUMIRA [Suspect]
     Active Substance: ADALIMUMAB
     Indication: PSORIASIS
     Route: 058
     Dates: start: 20090101
  2. HUMIRA [Suspect]
     Active Substance: ADALIMUMAB
     Route: 058
     Dates: start: 201003

REACTIONS (11)
  - Cardiac disorder [Unknown]
  - Post procedural contusion [Unknown]
  - Clear cell renal cell carcinoma [Unknown]
  - Hernia pain [Unknown]
  - Cardiac failure [Unknown]
  - Exposure during pregnancy [Unknown]
  - Lung disorder [Unknown]
  - Post procedural complication [Unknown]
  - Cardiac output increased [Unknown]
  - Cerebral artery embolism [Unknown]
  - Hypertension [Unknown]

NARRATIVE: CASE EVENT DATE: 201209
